FAERS Safety Report 17176815 (Version 1)
Quarter: 2019Q4

REPORT INFORMATION
  Report Type: Spontaneous
  Country: GB (occurrence: GB)
  Receive Date: 20191219
  Receipt Date: 20191219
  Transmission Date: 20200122
  Serious: Yes (Hospitalization)
  Sender: FDA-Public Use
  Company Number: GB-ASTRAZENECA-2019SF79684

PATIENT
  Age: 57 Year
  Sex: Male

DRUGS (15)
  1. NALOXONE [Concomitant]
     Active Substance: NALOXONE
  2. RAMIPRIL. [Concomitant]
     Active Substance: RAMIPRIL
  3. SIMVASTATIN. [Concomitant]
     Active Substance: SIMVASTATIN
  4. NICOTINE. [Concomitant]
     Active Substance: NICOTINE
  5. ENOXAPARIN [Concomitant]
     Active Substance: ENOXAPARIN
  6. ORAMORPH [Concomitant]
     Active Substance: MORPHINE SULFATE
  7. ATORVASTATIN [Concomitant]
     Active Substance: ATORVASTATIN
  8. METFORMIN [Concomitant]
     Active Substance: METFORMIN HYDROCHLORIDE
  9. NICOTINE. [Concomitant]
     Active Substance: NICOTINE
     Route: 055
  10. ACETYLSALICYLIC ACID [Concomitant]
     Active Substance: ASPIRIN
  11. AMITRIPTYLINE [Concomitant]
     Active Substance: AMITRIPTYLINE
  12. PARACETAMOL [Concomitant]
     Active Substance: ACETAMINOPHEN
  13. SITAGLIPTIN [Concomitant]
     Active Substance: SITAGLIPTIN
  14. DAPAGLIFLOZIN. [Suspect]
     Active Substance: DAPAGLIFLOZIN
     Indication: TYPE 2 DIABETES MELLITUS
     Dosage: 10.0MG UNKNOWN
     Route: 048
     Dates: start: 20180816, end: 20191107
  15. SALBUTAMOL [Concomitant]
     Active Substance: ALBUTEROL

REACTIONS (4)
  - Skin ulcer [Not Recovered/Not Resolved]
  - Necrosis [Unknown]
  - Localised infection [Unknown]
  - Osteomyelitis [Unknown]
